FAERS Safety Report 5098083-1 (Version None)
Quarter: 2006Q3

REPORT INFORMATION
  Report Type: 
  Country: None (occurrence: None)
  Receive Date: 20060906
  Receipt Date: 20060407
  Transmission Date: 20061208
  Serious: No
  Sender: FDA-Public Use
  Company Number: US-GLAXOSMITHKLINE-A0600912A

PATIENT
  Age: 54 Year
  Sex: Female

DRUGS (3)
  1. REQUIP [Suspect]
     Indication: RESTLESS LEGS SYNDROME
     Dosage: .5MG PER DAY
     Route: 048
  2. ZIAC [Concomitant]
  3. LEXAPRO [Concomitant]

REACTIONS (3)
  - BALANCE DISORDER [None]
  - HOT FLUSH [None]
  - NAUSEA [None]
